FAERS Safety Report 14194049 (Version 1)
Quarter: 2017Q4

REPORT INFORMATION
  Report Type: Report from Study
  Country: None (occurrence: US)
  Receive Date: 20171116
  Receipt Date: 20171116
  Transmission Date: 20180321
  Serious: Yes (Hospitalization, Other)
  Sender: FDA-Public Use
  Company Number: US-ABBVIE-13P-163-1063991-00

PATIENT
  Age: 67 Year
  Sex: Female
  Weight: 58.11 kg

DRUGS (6)
  1. HUMIRA [Suspect]
     Active Substance: ADALIMUMAB
     Route: 058
     Dates: start: 20170313
  2. HUMIRA [Suspect]
     Active Substance: ADALIMUMAB
     Indication: RHEUMATOID ARTHRITIS
     Route: 058
     Dates: start: 2010, end: 201301
  3. PLAVIX [Concomitant]
     Active Substance: CLOPIDOGREL BISULFATE
     Indication: PRODUCT USED FOR UNKNOWN INDICATION
  4. FOLIC ACID. [Concomitant]
     Active Substance: FOLIC ACID
     Indication: PRODUCT USED FOR UNKNOWN INDICATION
  5. LASIX [Concomitant]
     Active Substance: FUROSEMIDE
     Indication: PRODUCT USED FOR UNKNOWN INDICATION
  6. METHOTREXATE. [Concomitant]
     Active Substance: METHOTREXATE
     Indication: PRODUCT USED FOR UNKNOWN INDICATION
     Dosage: 8 PILLS EVERY WEDNESDAY

REACTIONS (17)
  - Coronary artery occlusion [Not Recovered/Not Resolved]
  - Vomiting [Recovered/Resolved]
  - Colitis [Recovering/Resolving]
  - Knee arthroplasty [Unknown]
  - Haemorrhoids [Not Recovered/Not Resolved]
  - Vascular stenosis [Not Recovered/Not Resolved]
  - Musculoskeletal pain [Recovered/Resolved]
  - Rotator cuff syndrome [Not Recovered/Not Resolved]
  - Injection site extravasation [Unknown]
  - Haemorrhage coronary artery [Recovering/Resolving]
  - Seizure [Recovered/Resolved]
  - Incorrect dose administered [Unknown]
  - Gastrointestinal haemorrhage [Recovering/Resolving]
  - Rectal haemorrhage [Recovered/Resolved]
  - Injection site haemorrhage [Unknown]
  - Fatigue [Unknown]
  - Dehydration [Recovered/Resolved]

NARRATIVE: CASE EVENT DATE: 2013
